FAERS Safety Report 5171415-1 (Version None)
Quarter: 2006Q4

REPORT INFORMATION
  Report Type: 
  Country: None (occurrence: None)
  Receive Date: 20061213
  Receipt Date: 20060523
  Transmission Date: 20070319
  Serious: Yes (Hospitalization)
  Sender: FDA-Public Use
  Company Number: US-AMGEN-STX180511

PATIENT
  Sex: Male
  Weight: 112.6 kg

DRUGS (9)
  1. ENBREL [Suspect]
     Indication: RHEUMATOID ARTHRITIS
     Route: 058
     Dates: start: 20001012, end: 20060210
  2. METHOTREXATE [Concomitant]
     Dates: start: 20000428
  3. TOPROL-XL [Concomitant]
  4. ALTACE [Concomitant]
  5. ASPIRIN [Concomitant]
  6. DARVOCET-N 100 [Concomitant]
  7. BENICAR [Concomitant]
  8. FOLIC ACID [Concomitant]
     Dates: start: 20000428
  9. HYDROCODONE [Concomitant]
     Dates: start: 20050125, end: 20050308

REACTIONS (1)
  - MYOCARDIAL INFARCTION [None]
